FAERS Safety Report 21812622 (Version 2)
Quarter: 2023Q1

REPORT INFORMATION
  Report Type: Spontaneous
  Country: CN (occurrence: CN)
  Receive Date: 20230103
  Receipt Date: 20230112
  Transmission Date: 20230418
  Serious: Yes (Hospitalization, Other)
  Sender: FDA-Public Use
  Company Number: CN-PFIZER INC-PV202300000186

PATIENT
  Age: 67 Year
  Sex: Female
  Weight: 50 kg

DRUGS (1)
  1. MEDROL [Suspect]
     Active Substance: METHYLPREDNISOLONE
     Indication: Systemic lupus erythematosus
     Dosage: 4.000 MG, 1X/DAY
     Route: 048
     Dates: start: 20220801, end: 20220912

REACTIONS (2)
  - Pneumonia [Recovering/Resolving]
  - Acinetobacter infection [Recovering/Resolving]

NARRATIVE: CASE EVENT DATE: 20220912
